FAERS Safety Report 5739578-4 (Version None)
Quarter: 2008Q2

REPORT INFORMATION
  Report Type: 
  Country: None (occurrence: None)
  Receive Date: 20080513
  Receipt Date: 20080505
  Transmission Date: 20081010
  Serious: Yes (Hospitalization, Other)
  Sender: FDA-Public Use
  Company Number: L08-JPN-01663-01

PATIENT
  Age: 57 Year
  Sex: Male

DRUGS (9)
  1. CARBAMAZEPINE [Suspect]
     Dosage: 300 MG QD
  2. LITHIUM CARBONATE [Suspect]
     Indication: BIPOLAR DISORDER
  3. LITHIUM CARBONATE [Suspect]
     Indication: BIPOLAR DISORDER
     Dosage: 500 MG QD
  4. LITHIUM CARBONATE [Suspect]
     Indication: BIPOLAR DISORDER
     Dosage: 300 MG QD
  5. ZOTEPINE [Concomitant]
  6. PROMETHAZINE [Concomitant]
  7. NITRAZEPAM [Concomitant]
  8. CHLORPROMAZINE [Concomitant]
  9. PHENOBARBITAL TAB [Concomitant]

REACTIONS (16)
  - ADAMS-STOKES SYNDROME [None]
  - ANTIPSYCHOTIC DRUG LEVEL BELOW THERAPEUTIC [None]
  - ATRIOVENTRICULAR BLOCK COMPLETE [None]
  - BIPOLAR I DISORDER [None]
  - CARDIO-RESPIRATORY ARREST [None]
  - CARDIOGENIC SHOCK [None]
  - DEPRESSED MOOD [None]
  - DISCOMFORT [None]
  - FATIGUE [None]
  - HYPOXIA [None]
  - LIVER DISORDER [None]
  - LOSS OF CONSCIOUSNESS [None]
  - MANIA [None]
  - RENAL IMPAIRMENT [None]
  - SYNCOPE [None]
  - VENTRICULAR FIBRILLATION [None]
